FAERS Safety Report 4876246-5 (Version None)
Quarter: 2006Q1

REPORT INFORMATION
  Report Type: 
  Country: None (occurrence: None)
  Receive Date: 20060106
  Receipt Date: 20051223
  Transmission Date: 20060701
  Serious: Yes (Hospitalization)
  Sender: FDA-Public Use
  Company Number: 20052698

PATIENT
  Sex: Male

DRUGS (1)
  1. LIORESAL [Suspect]
     Indication: MUSCLE SPASTICITY
     Dosage: UNK MCG, DAILY, INTRATHECAL
     Route: 037

REACTIONS (8)
  - ASPIRATION [None]
  - CATHETER RELATED COMPLICATION [None]
  - CONVULSION [None]
  - LUNG DISORDER [None]
  - LUNG INFECTION [None]
  - NAUSEA [None]
  - PARALYSIS [None]
  - PYREXIA [None]
